FAERS Safety Report 21313973 (Version 1)
Quarter: 2022Q3

REPORT INFORMATION
  Report Type: Spontaneous
  Country: US (occurrence: None)
  Receive Date: 20220909
  Receipt Date: 20220909
  Transmission Date: 20221027
  Serious: Yes (Life-Threatening, Hospitalization)
  Sender: FDA-Public Use
  Company Number: None

PATIENT
  Age: 75 Year
  Sex: Male
  Weight: 108 kg

DRUGS (12)
  1. BRIMONIDINE TARTRATE [Suspect]
     Active Substance: BRIMONIDINE TARTRATE
     Indication: Glaucoma
     Dosage: OTHER QUANTITY : 1 DROP(S);?OTHER FREQUENCY : 1 DROP IN BOTH EYE;?OTHER ROUTE : 1 DROP IN BOTH EYES
     Route: 050
     Dates: start: 20220720, end: 20220827
  2. FLUTICASONE PROPIONATE [Concomitant]
     Active Substance: FLUTICASONE PROPIONATE
  3. AZELASTINE HYDROCHLORIDE [Concomitant]
     Active Substance: AZELASTINE HYDROCHLORIDE
  4. Cittirizine HCL [Concomitant]
  5. LISINOPRIL [Concomitant]
     Active Substance: LISINOPRIL
  6. ATORVASTATIN [Concomitant]
     Active Substance: ATORVASTATIN
  7. LATANOPROST [Concomitant]
     Active Substance: LATANOPROST
  8. NAPROXEN [Concomitant]
     Active Substance: NAPROXEN
  9. FISH OIL [Concomitant]
     Active Substance: FISH OIL
  10. D3 6000 IU [Concomitant]
  11. VITAMINS [Concomitant]
     Active Substance: VITAMINS
  12. DIETARY SUPPLEMENT [Concomitant]
     Active Substance: DIETARY SUPPLEMENT

REACTIONS (2)
  - Craniocerebral injury [None]
  - Road traffic accident [None]

NARRATIVE: CASE EVENT DATE: 20220822
